FAERS Safety Report 23111493 (Version 1)
Quarter: 2023Q4

REPORT INFORMATION
  Report Type: Spontaneous
  Country: MX (occurrence: MX)
  Receive Date: 20231026
  Receipt Date: 20231026
  Transmission Date: 20240109
  Serious: Yes (Other)
  Sender: FDA-Public Use
  Company Number: MX-SANDOZ-SDZ2023MX043985

PATIENT
  Age: 79 Year
  Sex: Female
  Weight: 99 kg

DRUGS (10)
  1. CLOPIDOGREL [Suspect]
     Active Substance: CLOPIDOGREL BISULFATE
     Indication: Anticoagulant therapy
     Dosage: UNK
     Route: 065
  2. COUMADIN [Suspect]
     Active Substance: WARFARIN SODIUM
     Indication: Anticoagulant therapy
     Dosage: 1 DF (DOSE FORM) FREQUENCY: START  WITH 1 TAB,  INCREASED TO 2  TABS, THEN 2 TABS  AND A QUARTER, LA
     Route: 048
  3. APIXABAN [Suspect]
     Active Substance: APIXABAN
     Indication: Anticoagulant therapy
     Dosage: 1 DF, TID 5MG 10 YEARS AGO  (APPROXIMATELY)
     Route: 065
  4. ENTRESTO [Suspect]
     Active Substance: SACUBITRIL\VALSARTAN
     Dosage: 0.5 DF, BID 100MG, PRESCRIBED FOR THE  HEART.
     Route: 048
  5. ENTRESTO [Suspect]
     Active Substance: SACUBITRIL\VALSARTAN
     Indication: Myocardial infarction
     Dosage: 1 DF, TID 2 YEARS AGO (APPROXIMATELY)
     Route: 048
  6. DAPAGLIFLOZIN [Suspect]
     Active Substance: DAPAGLIFLOZIN
     Indication: Myocardial infarction
     Dosage: 2 DF, QD 10MG, PRESCRIBED FOR THE  HEART AND DIABETES.
     Route: 065
     Dates: start: 2023
  7. DAPAGLIFLOZIN [Suspect]
     Active Substance: DAPAGLIFLOZIN
     Indication: Diabetes mellitus
  8. METOPROLOL [Suspect]
     Active Substance: METOPROLOL
     Indication: Hypertension
     Dosage: 0.5 DF, BID
     Route: 065
  9. LASIX [Suspect]
     Active Substance: FUROSEMIDE
     Indication: Diuretic therapy
     Dosage: 1 DF, QD 40MG, PRESCRIBED AS  DIURETIC
     Route: 048
     Dates: start: 202305
  10. LIPITOR [Suspect]
     Active Substance: ATORVASTATIN CALCIUM
     Indication: Blood cholesterol
     Dosage: 1 DF, QD 20MG, PRESCRIBE FOR  CHOLESTEROL
     Route: 048
     Dates: start: 2020

REACTIONS (1)
  - Cardiac pacemaker insertion [Recovering/Resolving]

NARRATIVE: CASE EVENT DATE: 20230501
